FAERS Safety Report 21830110 (Version 2)
Quarter: 2023Q2

REPORT INFORMATION
  Report Type: Report from Study
  Country: US (occurrence: US)
  Receive Date: 20230106
  Receipt Date: 20230405
  Transmission Date: 20230722
  Serious: No
  Sender: FDA-Public Use
  Company Number: US-ABBVIE-4254990

PATIENT
  Age: 33 Year
  Sex: Male

DRUGS (1)
  1. RINVOQ [Suspect]
     Active Substance: UPADACITINIB
     Indication: Psoriatic arthropathy
     Route: 048
     Dates: start: 20220525, end: 20221226

REACTIONS (6)
  - Rash macular [Not Recovered/Not Resolved]
  - Psoriatic arthropathy [Not Recovered/Not Resolved]
  - Oedema peripheral [Unknown]
  - Therapeutic product effect decreased [Unknown]
  - Unevaluable event [Unknown]
  - Cold sweat [Unknown]

NARRATIVE: CASE EVENT DATE: 20221201
